FAERS Safety Report 21366045 (Version 1)
Quarter: 2022Q3

REPORT INFORMATION
  Report Type: Report from Study
  Country: CA (occurrence: CA)
  Receive Date: 20220922
  Receipt Date: 20220922
  Transmission Date: 20221027
  Serious: Yes (Other)
  Sender: FDA-Public Use
  Company Number: CA-JNJFOC-20220833784

PATIENT
  Age: 52 Year
  Sex: Female
  Weight: 84 kg

DRUGS (2)
  1. STELARA [Suspect]
     Active Substance: USTEKINUMAB
     Indication: Crohn^s disease
     Route: 058
     Dates: start: 20200821
  2. STELARA [Suspect]
     Active Substance: USTEKINUMAB
     Dosage: REINDUCTION?FOLLOWED BY 90 MG SUBCUTANEOUSLY ONCE IN EVERY 4 WEEKS
     Route: 042
     Dates: start: 20220915

REACTIONS (7)
  - Infusion related reaction [Recovered/Resolved]
  - Clostridium difficile infection [Unknown]
  - Nausea [Recovered/Resolved]
  - Crohn^s disease [Unknown]
  - Vomiting [Unknown]
  - Anal fissure [Unknown]
  - Product dose omission issue [Unknown]

NARRATIVE: CASE EVENT DATE: 20220915
